FAERS Safety Report 9842689 (Version 3)
Quarter: 2014Q1

REPORT INFORMATION
  Report Type: Spontaneous
  Country: GR (occurrence: GR)
  Receive Date: 20140124
  Receipt Date: 20140131
  Transmission Date: 20141002
  Serious: Yes (Death, Other)
  Sender: FDA-Public Use
  Company Number: GR-PFIZER INC-2014019856

PATIENT
  Age: 78 Year
  Sex: Female

DRUGS (4)
  1. ETHAMBUTOL [Suspect]
     Indication: DISSEMINATED TUBERCULOSIS
     Dosage: UNK
  2. RIFAMPICIN [Suspect]
     Indication: DISSEMINATED TUBERCULOSIS
     Dosage: UNK
  3. ISONIAZID [Suspect]
     Indication: DISSEMINATED TUBERCULOSIS
  4. PYRAZINAMIDE [Suspect]
     Indication: DISSEMINATED TUBERCULOSIS
     Dosage: UNK

REACTIONS (3)
  - Condition aggravated [Fatal]
  - Acute respiratory distress syndrome [Fatal]
  - Meningitis tuberculous [Not Recovered/Not Resolved]
